FAERS Safety Report 7197522-X (Version None)
Quarter: 2010Q4

REPORT INFORMATION
  Report Type: 
  Country: None (occurrence: None)
  Receive Date: 20101227
  Receipt Date: 20101217
  Transmission Date: 20110411
  Serious: Yes (Other)
  Sender: FDA-Public Use
  Company Number: JP-ASTRAZENECA-2010SE58052

PATIENT
  Age: 49 Year
  Sex: Male

DRUGS (5)
  1. SYMBICORT [Suspect]
     Indication: ASTHMA
     Route: 055
     Dates: start: 20100617
  2. ADOAIR [Concomitant]
     Indication: ASTHMA
     Route: 055
     Dates: end: 20100617
  3. SINGULAIR [Concomitant]
     Indication: ASTHMA
     Route: 048
     Dates: start: 20100327
  4. THEOLONG [Concomitant]
     Indication: ASTHMA
     Route: 048
  5. MUCOSOLVAN [Concomitant]
     Indication: ASTHMA
     Route: 048

REACTIONS (2)
  - BRONCHOPNEUMONIA [None]
  - PNEUMONIA [None]
